FAERS Safety Report 6774619-7 (Version None)
Quarter: 2010Q2

REPORT INFORMATION
  Report Type: 
  Country: None (occurrence: None)
  Receive Date: 20100617
  Receipt Date: 20100609
  Transmission Date: 20101027
  Serious: Yes (Other)
  Sender: FDA-Public Use
  Company Number: US-ROCHE-687407

PATIENT
  Sex: Male
  Weight: 93 kg

DRUGS (4)
  1. ACCUTANE [Suspect]
     Route: 065
     Dates: start: 20030101
  2. ACCUTANE [Suspect]
     Route: 065
     Dates: start: 20030217
  3. ACCUTANE [Suspect]
     Route: 065
     Dates: start: 20030408, end: 20030601
  4. AMNESTEEM [Suspect]
     Route: 065
     Dates: start: 20021201, end: 20030101

REACTIONS (9)
  - BLOOD CHOLESTEROL INCREASED [None]
  - BLOOD TRIGLYCERIDES INCREASED [None]
  - CHEILITIS [None]
  - CROHN'S DISEASE [None]
  - DRY SKIN [None]
  - ECZEMA [None]
  - FISTULA [None]
  - INFLAMMATORY BOWEL DISEASE [None]
  - LIP DRY [None]
